FAERS Safety Report 6974561-2 (Version None)
Quarter: 2010Q3

REPORT INFORMATION
  Report Type: 
  Country: None (occurrence: None)
  Receive Date: 20100909
  Receipt Date: 20100909
  Transmission Date: 20110219
  Serious: Yes (Other)
  Sender: FDA-Public Use
  Company Number: None

PATIENT
  Age: 67 Year
  Sex: Female
  Weight: 97.977 kg

DRUGS (14)
  1. NOVOLIN 70/30 [Suspect]
     Indication: DIABETES MELLITUS
     Dosage: 40 UNITS IN AM, 20 UNITS IN PM DAILY SL
     Route: 060
  2. LOTENSIN [Concomitant]
  3. HYDROCHLOROTHIAZIDE [Concomitant]
  4. NORVASC [Concomitant]
  5. CALTRATE 600 + D [Concomitant]
  6. ASPIRIN [Concomitant]
  7. METOPROLOL TARTRATE [Concomitant]
  8. PRAVACHOL [Concomitant]
  9. VALTREX [Concomitant]
  10. NORTRIPTYLINE HCL [Concomitant]
  11. REFRESH OPTIVE UAD [Concomitant]
  12. FLONASE [Concomitant]
  13. VENTOLIN [Concomitant]
  14. KEFLEX [Concomitant]

REACTIONS (4)
  - BURNING SENSATION [None]
  - PRURITUS [None]
  - RASH [None]
  - URTICARIA [None]
